FAERS Safety Report 9126639 (Version 2)
Quarter: 2013Q2

REPORT INFORMATION
  Report Type: Report from Study
  Country: GB (occurrence: GB)
  Receive Date: 20130117
  Receipt Date: 20130403
  Transmission Date: 20140414
  Serious: Yes (Death)
  Sender: FDA-Public Use
  Company Number: GB-ROCHE-1179425

PATIENT
  Sex: Male

DRUGS (5)
  1. RITUXIMAB [Suspect]
     Indication: RHEUMATOID ARTHRITIS
     Route: 042
     Dates: start: 20101001
  2. LEFLUNOMIDE [Concomitant]
     Indication: PRODUCT USED FOR UNKNOWN INDICATION
     Route: 065
     Dates: start: 200711
  3. DALTEPARIN [Concomitant]
  4. WARFARIN [Concomitant]
     Route: 065
     Dates: start: 20121022
  5. WARFARIN [Concomitant]
     Route: 065
     Dates: start: 20121023

REACTIONS (4)
  - Pulmonary fibrosis [Fatal]
  - Pulmonary embolism [Fatal]
  - Asbestosis [Fatal]
  - Interstitial lung disease [Fatal]
